FAERS Safety Report 5228782-X (Version None)
Quarter: 2007Q1

REPORT INFORMATION
  Report Type: 
  Country: None (occurrence: None)
  Receive Date: 20070205
  Receipt Date: 20070124
  Transmission Date: 20070707
  Serious: Yes (Hospitalization)
  Sender: FDA-Public Use
  Company Number: JP-MERCK-0612USA03068

PATIENT
  Age: 37 Year
  Sex: Male

DRUGS (4)
  1. PEPCID RPD [Suspect]
     Indication: GASTROENTERITIS
     Route: 048
     Dates: start: 20061121, end: 20061126
  2. HYDROXYZINE PAMOATE [Suspect]
     Indication: GASTROENTERITIS
     Route: 048
     Dates: start: 20061121, end: 20061126
  3. ZOPICLONE [Suspect]
     Indication: GASTROENTERITIS
     Route: 048
     Dates: start: 20061121, end: 20061126
  4. DOMPERIDONE [Suspect]
     Indication: GASTROENTERITIS
     Route: 048
     Dates: start: 20061121, end: 20061126

REACTIONS (5)
  - ANAEMIA [None]
  - DIARRHOEA [None]
  - GASTRIC ULCER HAEMORRHAGE [None]
  - JAUNDICE [None]
  - LIVER DISORDER [None]
